FAERS Safety Report 5491603-4 (Version None)
Quarter: 2007Q4

REPORT INFORMATION
  Report Type: 
  Country: None (occurrence: None)
  Receive Date: 20071022
  Receipt Date: 20071011
  Transmission Date: 20080405
  Serious: Yes (Hospitalization)
  Sender: FDA-Public Use
  Company Number: FR-BAYER-200710550BFR

PATIENT
  Age: 95 Year
  Sex: Female

DRUGS (13)
  1. JOSACINE [Interacting]
     Indication: WOUND INFECTION
     Route: 048
     Dates: start: 20070101, end: 20070801
  2. PREVISCAN [Interacting]
     Indication: ARRHYTHMIA
     Route: 048
     Dates: end: 20070811
  3. PREVISCAN [Interacting]
     Route: 048
     Dates: start: 20070801
  4. ACARBOSE [Suspect]
     Indication: TYPE 2 DIABETES MELLITUS
     Route: 048
  5. GLICLAZIDE [Concomitant]
     Indication: UNEVALUABLE EVENT
  6. CAPTEA [Concomitant]
     Indication: UNEVALUABLE EVENT
  7. CARDENSIEL [Concomitant]
     Indication: UNEVALUABLE EVENT
  8. CIPROFIBRATE [Concomitant]
     Indication: UNEVALUABLE EVENT
  9. ENDOTELON [Concomitant]
     Indication: UNEVALUABLE EVENT
  10. DEXERYL [Concomitant]
     Indication: UNEVALUABLE EVENT
  11. DIANTALVIC [Concomitant]
     Indication: UNEVALUABLE EVENT
  12. XALATAN [Concomitant]
     Indication: UNEVALUABLE EVENT
  13. TEVETEN [Concomitant]
     Indication: UNEVALUABLE EVENT

REACTIONS (5)
  - ANAEMIA [None]
  - HAEMATOMA [None]
  - HYPOVOLAEMIC SHOCK [None]
  - INTERNATIONAL NORMALISED RATIO INCREASED [None]
  - PETECHIAE [None]
